FAERS Safety Report 14860977 (Version 1)
Quarter: 2018Q2

REPORT INFORMATION
  Report Type: Spontaneous
  Country: US (occurrence: US)
  Receive Date: 20180423
  Receipt Date: 20180423
  Transmission Date: 20180711
  Serious: Yes (Other)
  Sender: FDA-Public Use
  Company Number: None

PATIENT
  Age: 30 Year
  Sex: Female
  Weight: 74.25 kg

DRUGS (5)
  1. ANCEF [Concomitant]
     Active Substance: CEFAZOLIN SODIUM
  2. RASPBERRY. [Concomitant]
     Active Substance: RASPBERRY
  3. MORPHINE [Concomitant]
     Active Substance: MORPHINE
  4. TRAMADOL. [Concomitant]
     Active Substance: TRAMADOL
  5. LEVOFLOXACIN. [Suspect]
     Active Substance: LEVOFLOXACIN
     Indication: SINUSITIS
     Dosage: ?          QUANTITY:1 TABLET(S);?
     Route: 048
     Dates: start: 20180420, end: 20180423

REACTIONS (6)
  - Restlessness [None]
  - Anxiety [None]
  - Deafness [None]
  - Hallucination [None]
  - Initial insomnia [None]
  - Tinnitus [None]

NARRATIVE: CASE EVENT DATE: 20180420
